FAERS Safety Report 10732544 (Version 1)
Quarter: 2015Q1

REPORT INFORMATION
  Report Type: Spontaneous
  Country: FR (occurrence: FR)
  Receive Date: 20150123
  Receipt Date: 20150123
  Transmission Date: 20150721
  Serious: Yes (Other)
  Sender: FDA-Public Use
  Company Number: PHHY2015FR004909

PATIENT

DRUGS (1)
  1. CERTICAN [Suspect]
     Active Substance: EVEROLIMUS
     Indication: TRANSPLANT
     Route: 065

REACTIONS (4)
  - General physical condition abnormal [Recovering/Resolving]
  - Transplant rejection [Recovering/Resolving]
  - Pulmonary hypertension [Recovering/Resolving]
  - Pulmonary oedema [Unknown]
